FAERS Safety Report 15082303 (Version 1)
Quarter: 2018Q2

REPORT INFORMATION
  Report Type: Spontaneous
  Country: US (occurrence: US)
  Receive Date: 20180628
  Receipt Date: 20180628
  Transmission Date: 20180711
  Serious: No
  Sender: FDA-Public Use
  Company Number: US-MYLANLABS-2018M1043925

PATIENT
  Sex: Female
  Weight: 64 kg

DRUGS (2)
  1. ESTRADIOL VAGINAL CREAM USP [Suspect]
     Active Substance: ESTRADIOL
     Indication: VULVOVAGINAL BURNING SENSATION
  2. ESTRADIOL VAGINAL CREAM USP [Suspect]
     Active Substance: ESTRADIOL
     Indication: VULVOVAGINAL DRYNESS
     Dosage: 4 MG, QD
     Route: 067
     Dates: start: 20180609, end: 20180613

REACTIONS (2)
  - Influenza like illness [Recovering/Resolving]
  - Pain [Recovering/Resolving]
